FAERS Safety Report 9537077 (Version 1)
Quarter: 2013Q3

REPORT INFORMATION
  Report Type: Spontaneous
  Country: US (occurrence: US)
  Receive Date: 20130919
  Receipt Date: 20130919
  Transmission Date: 20140515
  Serious: No
  Sender: FDA-Public Use
  Company Number: US-PFIZER INC-2013268484

PATIENT
  Age: 27 Year
  Sex: Female
  Weight: 119 kg

DRUGS (3)
  1. VFEND [Suspect]
     Indication: ABSCESS
     Dosage: 400 MG, SINGLE
     Route: 042
     Dates: start: 20130814, end: 20130814
  2. VFEND [Suspect]
     Indication: ABSCESS
     Dosage: 200 MG, 2X/DAY
     Route: 048
     Dates: start: 20130815
  3. VFEND [Suspect]
     Dosage: 300 MG, 2X/DAY
     Route: 048
     Dates: start: 20130831

REACTIONS (1)
  - Drug level below therapeutic [Unknown]
